FAERS Safety Report 19404674 (Version 1)
Quarter: 2021Q2

REPORT INFORMATION
  Report Type: Other
  Country: CA (occurrence: CA)
  Receive Date: 20210611
  Receipt Date: 20210611
  Transmission Date: 20210717
  Serious: Yes (Other)
  Sender: FDA-Public Use
  Company Number: CA-PFIZER INC-2021634222

PATIENT
  Age: 47 Year
  Sex: Male

DRUGS (21)
  1. HYDROMORPHONE HYDROCHLORIDE. [Suspect]
     Active Substance: HYDROMORPHONE HYDROCHLORIDE
     Dosage: UNK
     Route: 042
  2. METRONIDAZOLE. [Suspect]
     Active Substance: METRONIDAZOLE
     Indication: POSTOPERATIVE CARE
     Dosage: 500 MG, 2X/DAY
     Route: 042
  3. MORPHINE SULFATE. [Suspect]
     Active Substance: MORPHINE SULFATE
     Indication: ABDOMINAL PAIN LOWER
  4. MORPHINE SULFATE. [Suspect]
     Active Substance: MORPHINE SULFATE
     Indication: ABDOMINAL PAIN LOWER
  5. HYDROMORPHONE HYDROCHLORIDE. [Suspect]
     Active Substance: HYDROMORPHONE HYDROCHLORIDE
     Dosage: UNK
     Route: 042
  6. FENTANYL CITRATE. [Suspect]
     Active Substance: FENTANYL CITRATE
     Indication: ABDOMINAL PAIN LOWER
  7. FENTANYL CITRATE. [Suspect]
     Active Substance: FENTANYL CITRATE
     Indication: DRUG WITHDRAWAL SYNDROME
     Dosage: UNK
     Route: 065
  8. HYDROMORPHONE HYDROCHLORIDE. [Suspect]
     Active Substance: HYDROMORPHONE HYDROCHLORIDE
     Dosage: UNK
  9. MORPHINE SULFATE. [Suspect]
     Active Substance: MORPHINE SULFATE
     Indication: ABDOMINAL PAIN LOWER
     Dosage: 700 MG, 1X/DAY
     Route: 048
  10. MORPHINE SULFATE. [Suspect]
     Active Substance: MORPHINE SULFATE
     Dosage: 400 MG, 1X/DAY
     Route: 048
  11. HYDROMORPHONE HYDROCHLORIDE. [Suspect]
     Active Substance: HYDROMORPHONE HYDROCHLORIDE
     Indication: DRUG WITHDRAWAL SYNDROME
     Dosage: UNK
     Route: 042
  12. CEFTRIAXONE SODIUM. [Suspect]
     Active Substance: CEFTRIAXONE SODIUM
     Indication: POSTOPERATIVE CARE
     Dosage: 1 G, 1X/DAY
     Route: 042
  13. MORPHINE SULFATE. [Suspect]
     Active Substance: MORPHINE SULFATE
     Indication: DRUG WITHDRAWAL SYNDROME
     Dosage: 50 MG
     Route: 048
  14. KETAMINE [Suspect]
     Active Substance: KETAMINE
     Indication: ABDOMINAL PAIN LOWER
     Dosage: UNK
     Route: 041
  15. MORPHINE SULFATE. [Suspect]
     Active Substance: MORPHINE SULFATE
     Indication: DRUG USE DISORDER
     Dosage: 300 MG, 1X/DAY
     Route: 048
  16. DIAMORPHINE HYDROCHLORIDE [Concomitant]
     Active Substance: DIACETYLMORPHINE HYDROCHLORIDE
     Indication: DRUG USE DISORDER
     Dosage: 1000 MG, 1X/DAY
     Route: 042
  17. HYDROMORPHONE HYDROCHLORIDE. [Suspect]
     Active Substance: HYDROMORPHONE HYDROCHLORIDE
     Dosage: UNK
     Route: 042
  18. HYDROMORPHONE HYDROCHLORIDE. [Suspect]
     Active Substance: HYDROMORPHONE HYDROCHLORIDE
     Dosage: UNK
     Route: 042
  19. MORPHINE SULFATE. [Suspect]
     Active Substance: MORPHINE SULFATE
     Indication: DRUG USE DISORDER
     Dosage: 10 MG
     Route: 042
  20. MORPHINE SULFATE. [Suspect]
     Active Substance: MORPHINE SULFATE
     Indication: DRUG WITHDRAWAL SYNDROME
     Dosage: 600 MG, 1X/DAY
     Route: 048
  21. MORPHINE SULFATE. [Suspect]
     Active Substance: MORPHINE SULFATE
     Indication: DRUG USE DISORDER

REACTIONS (10)
  - Inadequate analgesia [Recovered/Resolved]
  - Nausea [Recovered/Resolved]
  - Drug ineffective [Recovered/Resolved]
  - Drug use disorder [Unknown]
  - Hypertension [Recovered/Resolved]
  - Somnolence [Recovered/Resolved]
  - Abdominal tenderness [Recovered/Resolved]
  - Drug tolerance [Recovered/Resolved]
  - Drug withdrawal syndrome [Recovered/Resolved]
  - Abdominal pain [Recovered/Resolved]
